FAERS Safety Report 4812382-7 (Version None)
Quarter: 2005Q4

REPORT INFORMATION
  Report Type: 
  Country: None (occurrence: None)
  Receive Date: 20051028
  Receipt Date: 20050121
  Transmission Date: 20060501
  Serious: No
  Sender: FDA-Public Use
  Company Number: US-GLAXOSMITHKLINE-A0541715A

PATIENT
  Age: 76 Year
  Sex: Female

DRUGS (5)
  1. ADVAIR DISKUS 100/50 [Suspect]
     Indication: ASTHMA
     Dosage: 1PUFF PER DAY
     Route: 055
     Dates: start: 20041201, end: 20050101
  2. PROTONIX [Concomitant]
  3. PEPCID [Concomitant]
  4. INDERAL [Concomitant]
     Route: 065
  5. HYDROCHLOROTHIAZIDE [Concomitant]
     Route: 065

REACTIONS (4)
  - DIZZINESS [None]
  - EYE IRRITATION [None]
  - EYE PAIN [None]
  - VISION BLURRED [None]
